FAERS Safety Report 4725283-X (Version None)
Quarter: 2005Q3

REPORT INFORMATION
  Report Type: 
  Country: None (occurrence: None)
  Receive Date: 20050725
  Receipt Date: 20050719
  Transmission Date: 20060218
  Serious: Yes (Hospitalization, Other)
  Sender: FDA-Public Use
  Company Number: 2005103698

PATIENT
  Age: 72 Year
  Sex: Male

DRUGS (1)
  1. LIPITOR [Suspect]

REACTIONS (5)
  - ECCHYMOSIS [None]
  - HAEMATOMA [None]
  - HAEMOLYTIC ANAEMIA [None]
  - PETECHIAE [None]
  - THROMBOCYTOPENIA [None]
